FAERS Safety Report 4709275-2 (Version None)
Quarter: 2005Q3

REPORT INFORMATION
  Report Type: 
  Country: None (occurrence: None)
  Receive Date: 20050708
  Receipt Date: 20050429
  Transmission Date: 20060218
  Serious: Yes (Life-Threatening)
  Sender: FDA-Public Use
  Company Number: 2005PK00770

PATIENT
  Age: 14740 Day
  Sex: Male
  Weight: 77 kg

DRUGS (2)
  1. SEROQUEL [Suspect]
     Indication: SCHIZOPHRENIA
     Route: 048
     Dates: start: 20050410, end: 20050425
  2. TAVOR [Concomitant]
     Route: 048
     Dates: start: 20050410, end: 20050425

REACTIONS (4)
  - CARDIAC ARREST [None]
  - CONVULSION [None]
  - HYPOXIA [None]
  - VENTRICULAR FIBRILLATION [None]
